FAERS Safety Report 13590143 (Version 1)
Quarter: 2017Q2

REPORT INFORMATION
  Report Type: Spontaneous
  Country: US (occurrence: US)
  Receive Date: 20170529
  Receipt Date: 20170529
  Transmission Date: 20170830
  Serious: Yes (Life-Threatening, Other)
  Sender: FDA-Public Use
  Company Number: None

PATIENT
  Age: 46 Year
  Sex: Male
  Weight: 67.5 kg

DRUGS (5)
  1. LIDOCAINE. [Concomitant]
     Active Substance: LIDOCAINE
  2. IBUPROFEN. [Concomitant]
     Active Substance: IBUPROFEN
  3. BENADRYL [Concomitant]
     Active Substance: DIPHENHYDRAMINE HYDROCHLORIDE
  4. MELATONIN SUPPLEMENT [Concomitant]
  5. FLONASE [Suspect]
     Active Substance: FLUTICASONE PROPIONATE
     Indication: MULTIPLE ALLERGIES
     Dosage: QUANTITY:2 SPRAY(S);?
     Route: 055
     Dates: start: 20150301, end: 20170416

REACTIONS (7)
  - Depression [None]
  - Suicidal ideation [None]
  - Hypersomnia [None]
  - Anxiety [None]
  - Decreased appetite [None]
  - Personality change [None]
  - Insomnia [None]

NARRATIVE: CASE EVENT DATE: 20170416
